FAERS Safety Report 17164609 (Version 1)
Quarter: 2019Q4

REPORT INFORMATION
  Report Type: Spontaneous
  Country: US (occurrence: US)
  Receive Date: 20191217
  Receipt Date: 20191217
  Transmission Date: 20200122
  Serious: Yes (Other)
  Sender: FDA-Public Use
  Company Number: US-PROCTER_AND_GAMBLE-GS19133283

PATIENT

DRUGS (1)
  1. VICKS DAYQUIL SEVERE COLD AND FLU [Suspect]
     Active Substance: ACETAMINOPHEN\DEXTROMETHORPHAN HYDROBROMIDE\GUAIFENESIN\PHENYLEPHRINE HYDROCHLORIDE
     Indication: MALAISE
     Route: 048

REACTIONS (2)
  - Choking [Recovered/Resolved]
  - Foreign body in respiratory tract [Recovered/Resolved]
